FAERS Safety Report 25004434 (Version 1)
Quarter: 2025Q1

REPORT INFORMATION
  Report Type: Spontaneous
  Country: US (occurrence: None)
  Receive Date: 20250222
  Receipt Date: 20250222
  Transmission Date: 20250408
  Serious: No
  Sender: FDA-CTU
  Company Number: None

PATIENT
  Age: 25 Year
  Sex: Male
  Weight: 63 kg

DRUGS (3)
  1. CABOTEGRAVIR [Suspect]
     Active Substance: CABOTEGRAVIR
     Indication: Prophylaxis against HIV infection
  2. ZYRTEC [Concomitant]
     Active Substance: CETIRIZINE HYDROCHLORIDE
  3. FLONASE [Concomitant]
     Active Substance: FLUTICASONE PROPIONATE

REACTIONS (4)
  - Pyrexia [None]
  - Joint stiffness [None]
  - Back pain [None]
  - Abdominal pain [None]

NARRATIVE: CASE EVENT DATE: 20250222
